FAERS Safety Report 21963261 (Version 1)
Quarter: 2023Q1

REPORT INFORMATION
  Report Type: Spontaneous
  Country: US (occurrence: US)
  Receive Date: 20230207
  Receipt Date: 20230207
  Transmission Date: 20230418
  Serious: No
  Sender: FDA-Public Use
  Company Number: US-AMRYT PHARMACEUTICALS DAC-AEGR005871

PATIENT
  Sex: Female
  Weight: 32.109 kg

DRUGS (4)
  1. MYALEPT [Suspect]
     Active Substance: METRELEPTIN
     Indication: Lipodystrophy acquired
     Dosage: 2.5 MILLIGRAM, QD
     Route: 058
  2. MYALEPT [Suspect]
     Active Substance: METRELEPTIN
     Dosage: 50 UNITS, QD
  3. HUMULIN 70/30 [Concomitant]
     Active Substance: INSULIN HUMAN
     Indication: Product used for unknown indication
     Dosage: UNK
  4. LEVOTHYROXINE SODIUM [Concomitant]
     Active Substance: LEVOTHYROXINE SODIUM
     Indication: Product used for unknown indication
     Dosage: UNK

REACTIONS (1)
  - Intentional product misuse [Unknown]
